FAERS Safety Report 7051909-4 (Version None)
Quarter: 2010Q4

REPORT INFORMATION
  Report Type: 
  Country: None (occurrence: None)
  Receive Date: 20101018
  Receipt Date: 20101018
  Transmission Date: 20110411
  Serious: Yes (Other)
  Sender: FDA-Public Use
  Company Number: None

PATIENT
  Age: 38 Year
  Sex: Female
  Weight: 107.9561 kg

DRUGS (2)
  1. SUBOXONE [Suspect]
     Dosage: 8MG BID PRN SL
     Route: 060
     Dates: start: 20100928, end: 20101013
  2. BUPRENORPHINE HCL [Suspect]

REACTIONS (4)
  - DYSPNOEA [None]
  - PAIN IN EXTREMITY [None]
  - PAIN IN JAW [None]
  - PRODUCT FORMULATION ISSUE [None]
